FAERS Safety Report 21060389 (Version 2)
Quarter: 2022Q3

REPORT INFORMATION
  Report Type: Spontaneous
  Country: US (occurrence: US)
  Receive Date: 20220708
  Receipt Date: 20220927
  Transmission Date: 20221027
  Serious: No
  Sender: FDA-Public Use
  Company Number: US-SA-SAC20220705000759

PATIENT
  Age: 46 Year
  Sex: Male

DRUGS (1)
  1. DUPIXENT [Suspect]
     Active Substance: DUPILUMAB
     Indication: Nasal polyps
     Dosage: 300MG,QOW
     Route: 058
     Dates: start: 20220609

REACTIONS (4)
  - Diarrhoea [Unknown]
  - Fatigue [Unknown]
  - Presbyopia [Unknown]
  - Dry eye [Unknown]

NARRATIVE: CASE EVENT DATE: 20220611
